FAERS Safety Report 4317801-0 (Version None)
Quarter: 2004Q1

REPORT INFORMATION
  Report Type: 
  Country: None (occurrence: None)
  Receive Date: 20040316
  Receipt Date: 20040305
  Transmission Date: 20041129
  Serious: Yes (Hospitalization)
  Sender: FDA-Public Use
  Company Number: PHRM2004FR01068

PATIENT
  Age: 37 Year
  Sex: Male
  Weight: 145 kg

DRUGS (8)
  1. TAREG [Suspect]
     Indication: HYPERTENSION
     Dosage: 160 MG, QD
     Route: 048
  2. PRETERAX [Suspect]
     Indication: HYPERTENSION
     Dosage: 1 DF, QD
     Route: 048
  3. VACCINES [Suspect]
     Indication: LEPTOSPIROSIS
     Dosage: 1 DF, QMO
     Route: 058
     Dates: start: 20031027, end: 20031127
  4. CELESTENE [Suspect]
     Indication: BRONCHITIS ACUTE
     Route: 048
     Dates: start: 20031129, end: 20031203
  5. KETEK [Suspect]
     Indication: BRONCHITIS ACUTE
     Route: 048
     Dates: start: 20031129, end: 20031203
  6. PNEUMOREL [Suspect]
     Indication: BRONCHITIS ACUTE
     Dates: start: 20031129, end: 20031203
  7. DIMETAPP [Suspect]
     Indication: BRONCHITIS ACUTE
  8. ACETAMINOPHEN [Suspect]
     Indication: BRONCHITIS ACUTE

REACTIONS (9)
  - ANGINA PECTORIS [None]
  - ATRIAL FLUTTER [None]
  - BLOOD CREATINE PHOSPHOKINASE INCREASED [None]
  - BRAIN NATRIURETIC PEPTIDE INCREASED [None]
  - BRONCHITIS ACUTE [None]
  - CARDIAC DISORDER [None]
  - CARDIOMYOPATHY [None]
  - COUGH [None]
  - GENERAL PHYSICAL HEALTH DETERIORATION [None]
